FAERS Safety Report 9027787 (Version 1)
Quarter: 2013Q1

REPORT INFORMATION
  Report Type: Spontaneous
  Country: FI (occurrence: FI)
  Receive Date: 20130124
  Receipt Date: 20130124
  Transmission Date: 20140127
  Serious: Yes (Life-Threatening, Hospitalization)
  Sender: FDA-Public Use
  Company Number: FI-JNJFOC-20130109637

PATIENT
  Age: 70 Year
  Sex: 0

DRUGS (2)
  1. REMICADE [Suspect]
     Indication: CROHN^S DISEASE
     Route: 042
     Dates: start: 20120927, end: 20121007
  2. THYROXIN [Concomitant]
     Indication: HYPOTHYROIDISM
     Dosage: STRENGTH: 0.25 MICROGRAM
     Route: 048
     Dates: start: 20000101

REACTIONS (1)
  - Disseminated tuberculosis [Not Recovered/Not Resolved]
